FAERS Safety Report 6375764-0 (Version None)
Quarter: 2009Q3

REPORT INFORMATION
  Report Type: 
  Country: None (occurrence: None)
  Receive Date: 20090924
  Receipt Date: 20090910
  Transmission Date: 20100115
  Serious: Yes (Hospitalization, Other)
  Sender: FDA-Public Use
  Company Number: US-PFIZER INC-2009255233

PATIENT
  Sex: Female

DRUGS (5)
  1. GEODON [Suspect]
     Indication: BIPOLAR DISORDER
     Dosage: 240 MG, 1X/DAY
     Route: 048
  2. AMBIEN [Concomitant]
  3. CELEXA [Concomitant]
     Dosage: 40 MG DAILY
  4. VISTARIL [Concomitant]
  5. LEVSIN [Concomitant]

REACTIONS (12)
  - BLOOD GLUCOSE INCREASED [None]
  - DIZZINESS [None]
  - DRUG EFFECT DECREASED [None]
  - ELECTROCARDIOGRAM QT INTERVAL ABNORMAL [None]
  - HEADACHE [None]
  - HYPOTENSION [None]
  - RESPIRATION ABNORMAL [None]
  - SEDATION [None]
  - SYNCOPE [None]
  - TENSION [None]
  - UNRESPONSIVE TO STIMULI [None]
  - URINARY INCONTINENCE [None]
